FAERS Safety Report 7151240-2 (Version None)
Quarter: 2010Q4

REPORT INFORMATION
  Report Type: 
  Country: None (occurrence: None)
  Receive Date: 20101210
  Receipt Date: 20101129
  Transmission Date: 20110411
  Serious: Yes (Other)
  Sender: FDA-Public Use
  Company Number: US-ELI_LILLY_AND_COMPANY-US201009004710

PATIENT
  Age: 64 Year
  Sex: Female

DRUGS (14)
  1. FORTEO [Suspect]
     Indication: OSTEOPOROSIS
     Dosage: 20 UG, UNK
     Route: 058
     Dates: start: 20100101
  2. FENTANYL CITRATE [Concomitant]
     Dosage: 75 UG, QOD
  3. TOPAMAX [Concomitant]
     Dosage: 100 MG, 2/D
  4. NEXIUM [Concomitant]
     Dosage: 40 MG, 3/D
  5. LYRICA [Concomitant]
     Dosage: 75 MG, 2/D
  6. NORTRIPTYLINE [Concomitant]
  7. MIRTAZAPINE [Concomitant]
     Dosage: 30 MG, DAILY (1/D)
  8. VITAMIN B12 NOS [Concomitant]
     Dosage: 1 ML, 2 TIMES A MONTH
     Route: 030
  9. METHADONE [Concomitant]
  10. DILAUDID [Concomitant]
     Dosage: 4 MG, EVERY 8 HRS
  11. COMPAZINE [Concomitant]
     Dosage: 10 MG, AS NEEDED
  12. ZANTAC [Concomitant]
     Dosage: 300 MG, DAILY (1/D)
  13. VALIUM [Concomitant]
     Dosage: 10 MG, 2/D
  14. REGLAN [Concomitant]
     Dosage: 10 MG, 1/2 TO ONE WITH EACH MEAL AS NEEDED

REACTIONS (2)
  - MIGRAINE [None]
  - SYNCOPE [None]
